FAERS Safety Report 8209041-X (Version None)
Quarter: 2012Q1

REPORT INFORMATION
  Report Type: 
  Country: None (occurrence: None)
  Receive Date: 20120314
  Receipt Date: 20120228
  Transmission Date: 20120608
  Serious: Yes (Other)
  Sender: FDA-Public Use
  Company Number: AU-WATSON-2012-03905

PATIENT
  Age: 30 Year
  Sex: Male

DRUGS (1)
  1. METRONIDAZOLE [Suspect]
     Indication: SPLENIC ABSCESS
     Dosage: UNK
     Route: 065

REACTIONS (6)
  - NEUROTOXICITY [None]
  - VERTIGO [None]
  - GAIT DISTURBANCE [None]
  - TINNITUS [None]
  - ATAXIA [None]
  - DEAFNESS [None]
